FAERS Safety Report 23140301 (Version 2)
Quarter: 2023Q4

REPORT INFORMATION
  Report Type: Report from Study
  Country: US (occurrence: US)
  Receive Date: 20231102
  Receipt Date: 20231109
  Transmission Date: 20240110
  Serious: No
  Sender: FDA-Public Use
  Company Number: US-GILEAD-2023-0649615

PATIENT
  Age: 52 Year
  Sex: Female
  Weight: 65 kg

DRUGS (17)
  1. BREXUCABTAGENE AUTOLEUCEL [Suspect]
     Active Substance: BREXUCABTAGENE AUTOLEUCEL
     Indication: Burkitt^s lymphoma
     Route: 042
     Dates: start: 20231023, end: 20231023
  2. FLUDARABINE [Suspect]
     Active Substance: FLUDARABINE PHOSPHATE
     Indication: Burkitt^s lymphoma
     Dosage: 51.25
     Route: 042
     Dates: start: 20231018, end: 20231018
  3. FLUDARABINE [Suspect]
     Active Substance: FLUDARABINE PHOSPHATE
     Dosage: 51.25
     Route: 042
     Dates: start: 20231019, end: 20231019
  4. FLUDARABINE [Suspect]
     Active Substance: FLUDARABINE PHOSPHATE
     Dosage: 51.25
     Route: 042
     Dates: start: 20231020, end: 20231020
  5. CYCLOPHOSPHAMIDE [Suspect]
     Active Substance: CYCLOPHOSPHAMIDE
     Indication: Burkitt^s lymphoma
     Dosage: 860
     Route: 042
     Dates: start: 20231018, end: 20231018
  6. CYCLOPHOSPHAMIDE [Suspect]
     Active Substance: CYCLOPHOSPHAMIDE
     Dosage: 860
     Route: 042
     Dates: start: 20231019, end: 20231019
  7. CYCLOPHOSPHAMIDE [Suspect]
     Active Substance: CYCLOPHOSPHAMIDE
     Dosage: 860
     Route: 042
     Dates: start: 20231020, end: 20231020
  8. ZYLOPRIM [Concomitant]
     Active Substance: ALLOPURINOL
     Dosage: 300,MG,DAILY
     Route: 048
     Dates: start: 20230228
  9. COLACE [Concomitant]
     Active Substance: DOCUSATE SODIUM
     Dosage: 100,MG,AS NECESSARY
     Route: 048
     Dates: start: 20230303, end: 20231011
  10. ZOFRAN [Concomitant]
     Active Substance: ONDANSETRON HYDROCHLORIDE
     Dosage: 8,MG,AS NECESSARY
     Route: 048
     Dates: start: 20230307, end: 20231011
  11. COMPAZINE [Concomitant]
     Active Substance: PROCHLORPERAZINE MALEATE
     Dosage: 10,MG,AS NECESSARY
     Route: 048
     Dates: start: 20230307, end: 20231011
  12. COMPAZINE [Concomitant]
     Active Substance: PROCHLORPERAZINE MALEATE
     Dosage: 10,MG,OTHER
     Route: 042
     Dates: start: 20231018, end: 20231018
  13. MYCELEX [Concomitant]
     Active Substance: CLOTRIMAZOLE
     Dosage: 10,MG,AS NECESSARY
     Route: 050
     Dates: start: 20230328
  14. ATIVAN [Concomitant]
     Active Substance: LORAZEPAM
     Dosage: 0.5,MG,AS NECESSARY
     Route: 048
     Dates: start: 20230331
  15. ZOVIRAX [Concomitant]
     Active Substance: ACYCLOVIR
     Dosage: 400,MG,TWICE DAILY
     Route: 048
     Dates: start: 20230411
  16. TESSALON [Concomitant]
     Active Substance: BENZONATATE
     Dosage: 200,MG,AS NECESSARY
     Route: 048
     Dates: start: 20230605
  17. NEURONTIN [Concomitant]
     Active Substance: GABAPENTIN
     Dosage: 300,MG,OTHER
     Route: 048
     Dates: start: 20230829

REACTIONS (2)
  - Febrile neutropenia [Recovered/Resolved]
  - Hypotension [Recovered/Resolved]

NARRATIVE: CASE EVENT DATE: 20231025
